FAERS Safety Report 19587564 (Version 1)
Quarter: 2021Q3

REPORT INFORMATION
  Report Type: Spontaneous
  Country: US (occurrence: US)
  Receive Date: 20210721
  Receipt Date: 20210721
  Transmission Date: 20211014
  Serious: Yes (Death, Hospitalization)
  Sender: FDA-Public Use
  Company Number: US-STRIDES ARCOLAB LIMITED-2020SP007655

PATIENT
  Age: 70 Year
  Sex: Female

DRUGS (5)
  1. MYCOPHENOLATE MOFETIL. [Suspect]
     Active Substance: MYCOPHENOLATE MOFETIL
     Indication: RENAL TRANSPLANT
     Dosage: UNK (MAINTENANCE)
     Route: 065
  2. PREDNISOLONE. [Suspect]
     Active Substance: PREDNISOLONE
     Indication: RENAL TRANSPLANT
     Dosage: UNK (MAINTENANCE)
     Route: 065
  3. VALGANCICLOVIR. [Concomitant]
     Active Substance: VALGANCICLOVIR
     Indication: PROPHYLAXIS
     Dosage: 450 MILLIGRAM DAILY
     Route: 048
  4. ANTITHYMOCYTE IMMUNOGLOBULIN (RABBIT) [Suspect]
     Active Substance: LAPINE T-LYMPHOCYTE IMMUNE GLOBULIN
     Indication: RENAL TRANSPLANT
     Dosage: UNK (INDUCTION)
     Route: 065
  5. BELATACEPT [Suspect]
     Active Substance: BELATACEPT
     Indication: RENAL TRANSPLANT
     Dosage: UNK (MAINTENANCE)
     Route: 065

REACTIONS (17)
  - Urine output decreased [Unknown]
  - Lethargy [Unknown]
  - Dysphagia [Unknown]
  - Tachycardia [Unknown]
  - Diarrhoea [Unknown]
  - Supraventricular tachycardia [Unknown]
  - Tachypnoea [Unknown]
  - Sepsis [Unknown]
  - Cardiac failure [Unknown]
  - Hypotension [Unknown]
  - Disseminated cytomegaloviral infection [Fatal]
  - Hypoxia [Unknown]
  - Pneumonia cytomegaloviral [Unknown]
  - Mental status changes [Unknown]
  - Disseminated intravascular coagulation [Unknown]
  - Cytomegalovirus myocarditis [Unknown]
  - Cytomegalovirus colitis [Unknown]
